FAERS Safety Report 23554551 (Version 1)
Quarter: 2024Q1

REPORT INFORMATION
  Report Type: Spontaneous
  Country: CN (occurrence: CN)
  Receive Date: 20240222
  Receipt Date: 20240222
  Transmission Date: 20240410
  Serious: Yes (Other)
  Sender: FDA-Public Use
  Company Number: CN-PFIZER INC-PV202400023828

PATIENT
  Age: 58 Year
  Sex: Male

DRUGS (9)
  1. AVIBACTAM SODIUM\CEFTAZIDIME [Suspect]
     Active Substance: AVIBACTAM SODIUM\CEFTAZIDIME
     Indication: Anti-infective therapy
     Dosage: UNK
  2. AVIBACTAM SODIUM\CEFTAZIDIME [Suspect]
     Active Substance: AVIBACTAM SODIUM\CEFTAZIDIME
     Indication: Antiviral treatment
  3. AVIBACTAM SODIUM\CEFTAZIDIME [Suspect]
     Active Substance: AVIBACTAM SODIUM\CEFTAZIDIME
     Indication: Symptomatic treatment
  4. TIGECYCLINE [Suspect]
     Active Substance: TIGECYCLINE
     Indication: Anti-infective therapy
     Dosage: UNK
  5. TIGECYCLINE [Suspect]
     Active Substance: TIGECYCLINE
     Indication: Antiviral treatment
  6. TIGECYCLINE [Suspect]
     Active Substance: TIGECYCLINE
     Indication: Symptomatic treatment
  7. POLYMYXIN [Suspect]
     Active Substance: POLYMYXIN
     Indication: Anti-infective therapy
     Dosage: UNK
  8. POLYMYXIN [Suspect]
     Active Substance: POLYMYXIN
     Indication: Antiviral treatment
  9. POLYMYXIN [Suspect]
     Active Substance: POLYMYXIN
     Indication: Symptomatic treatment

REACTIONS (1)
  - Oxygen saturation decreased [Unknown]
